FAERS Safety Report 4732459-4 (Version None)
Quarter: 2005Q3

REPORT INFORMATION
  Report Type: 
  Country: None (occurrence: None)
  Receive Date: 20050803
  Receipt Date: 20050725
  Transmission Date: 20060218
  Serious: Yes (Hospitalization, Other)
  Sender: FDA-Public Use
  Company Number: IT-BRISTOL-MYERS SQUIBB COMPANY-13049242

PATIENT
  Age: 52 Year
  Sex: Female

DRUGS (11)
  1. IFOSFAMIDE [Suspect]
     Indication: SARCOMA
     Route: 042
  2. EPIRUBICIN [Concomitant]
  3. CISPLATIN [Concomitant]
  4. VINDESINE [Concomitant]
  5. FENTANYL [Concomitant]
  6. ROFECOXIB [Concomitant]
  7. AMITRIPTYLINE HCL [Concomitant]
  8. LOW MOLECULAR WEIGHT HEPARINS [Concomitant]
  9. OMEPRAZOLE [Concomitant]
  10. FUROSEMIDE [Concomitant]
  11. ALLOPURINOL [Concomitant]

REACTIONS (5)
  - ANAEMIA [None]
  - ENCEPHALOPATHY [None]
  - PYREXIA [None]
  - TACHYCARDIA [None]
  - TACHYPNOEA [None]
